FAERS Safety Report 7625801-8 (Version None)
Quarter: 2011Q3

REPORT INFORMATION
  Report Type: 
  Country: None (occurrence: None)
  Receive Date: 20110721
  Receipt Date: 20110712
  Transmission Date: 20111222
  Serious: Yes (Other)
  Sender: FDA-Public Use
  Company Number: JP-NOVOPROD-329804

PATIENT
  Age: 57 Year
  Sex: Male
  Weight: 89 kg

DRUGS (4)
  1. MICARDIS [Concomitant]
     Indication: HYPERTENSION
     Dosage: 40 MG, QD
     Route: 048
  2. VICTOZA [Suspect]
     Dosage: 0.9 MG, QD
     Route: 058
     Dates: start: 20101005
  3. VICTOZA [Suspect]
     Indication: TYPE 2 DIABETES MELLITUS
     Dosage: 0.3 MG, QD
     Route: 058
     Dates: start: 20100928
  4. VICTOZA [Suspect]
     Dosage: 0.6 MG, QD
     Route: 058
     Dates: start: 20101001

REACTIONS (1)
  - IGA NEPHROPATHY [None]
